FAERS Safety Report 5773105-0 (Version None)
Quarter: 2008Q2

REPORT INFORMATION
  Report Type: 
  Country: None (occurrence: None)
  Receive Date: 20080613
  Receipt Date: 20080602
  Transmission Date: 20081010
  Serious: Yes (Life-Threatening)
  Sender: FDA-Public Use
  Company Number: JP-GENENTECH-252394

PATIENT
  Sex: Female

DRUGS (9)
  1. BEVACIZUMAB [Suspect]
     Indication: RECTAL CANCER RECURRENT
     Dosage: 5 MG/KG, QD
     Route: 041
     Dates: start: 20070905, end: 20071031
  2. IRINOTECAN HCL [Suspect]
     Indication: RECTAL CANCER RECURRENT
     Dosage: 107 MG/M2, QD
     Route: 041
     Dates: start: 20070906
  3. ISOVORIN [Suspect]
     Indication: RECTAL CANCER RECURRENT
     Dosage: 192 MG/M2, QD
     Route: 041
     Dates: start: 20070906
  4. FLUOROURACIL [Suspect]
     Indication: RECTAL CANCER RECURRENT
     Dosage: 385 MG/M2, QD
     Route: 042
     Dates: start: 20070906
  5. LANSOPRAZOLE [Concomitant]
     Indication: DRUG USE FOR UNKNOWN INDICATION
     Dates: start: 20061009
  6. AROTINOLOL HYDROCHLORIDE [Concomitant]
     Indication: DRUG USE FOR UNKNOWN INDICATION
     Dosage: UNK, UNK
     Dates: start: 20061030
  7. ASPARA K [Concomitant]
     Indication: DRUG USE FOR UNKNOWN INDICATION
     Dates: start: 20070828
  8. PREDONINE [Concomitant]
     Indication: DRUG USE FOR UNKNOWN INDICATION
     Dates: start: 20061027
  9. LASIX [Concomitant]
     Indication: DRUG USE FOR UNKNOWN INDICATION
     Dates: start: 20070314

REACTIONS (4)
  - FEBRILE NEUTROPENIA [None]
  - HAEMOGLOBIN DECREASED [None]
  - PLATELET COUNT DECREASED [None]
  - WHITE BLOOD CELL COUNT DECREASED [None]
